FAERS Safety Report 5225499-2 (Version None)
Quarter: 2007Q1

REPORT INFORMATION
  Report Type: 
  Country: None (occurrence: None)
  Receive Date: 20070131
  Receipt Date: 20070110
  Transmission Date: 20070707
  Serious: Yes (Hospitalization, Other)
  Sender: FDA-Public Use
  Company Number: US-PFIZER INC-2007004632

PATIENT
  Sex: Female
  Weight: 61.7 kg

DRUGS (1)
  1. BEXTRA [Suspect]
     Indication: OSTEOARTHRITIS
     Route: 048
     Dates: start: 20021127, end: 20040124

REACTIONS (1)
  - CEREBROVASCULAR ACCIDENT [None]
